FAERS Safety Report 4433531-9 (Version None)
Quarter: 2004Q3

REPORT INFORMATION
  Report Type: 
  Country: None (occurrence: None)
  Receive Date: 20040825
  Receipt Date: 20040819
  Transmission Date: 20050211
  Serious: Yes (Death, Hospitalization)
  Sender: FDA-Public Use
  Company Number: 04-08-1206

PATIENT
  Age: 26 Year
  Sex: Male

DRUGS (4)
  1. DOXYCYCLINE HYCLATE [Suspect]
     Indication: PLASMODIUM FALCIPARUM INFECTION
  2. QUININE [Suspect]
     Dosage: 600MG BD INTRAVENOUS
     Route: 042
  3. CHLOROQUINE [Concomitant]
  4. CEFUROXIME [Concomitant]

REACTIONS (13)
  - ASPERGILLOSIS [None]
  - BRAIN ABSCESS [None]
  - CEREBRAL INFARCTION [None]
  - HAEMOLYSIS [None]
  - IMMUNOSUPPRESSION [None]
  - INTRACRANIAL PRESSURE INCREASED [None]
  - LUNG INFECTION PSEUDOMONAL [None]
  - MUCORMYCOSIS [None]
  - MUSCLE SPASMS [None]
  - MYOCARDIAC ABSCESS [None]
  - RENAL ABSCESS [None]
  - RENAL FAILURE [None]
  - SYSTEMIC MYCOSIS [None]
